FAERS Safety Report 4392442-8 (Version None)
Quarter: 2004Q3

REPORT INFORMATION
  Report Type: 
  Country: None (occurrence: None)
  Receive Date: 20040702
  Receipt Date: 20040310
  Transmission Date: 20050211
  Serious: Yes (Other)
  Sender: FDA-Public Use
  Company Number: 2004UW04545

PATIENT
  Sex: Female

DRUGS (6)
  1. CRESTOR [Suspect]
     Dosage: 10 MG PO
     Route: 048
  2. PLAVIX [Concomitant]
  3. GLUCOPHAGE [Concomitant]
  4. NITROGLYCERIN [Concomitant]
  5. TRICOR [Concomitant]
  6. DIOVAN [Concomitant]

REACTIONS (1)
  - HOT FLUSH [None]
